FAERS Safety Report 9476328 (Version 1)
Quarter: 2013Q3

REPORT INFORMATION
  Report Type: Spontaneous
  Country: US (occurrence: US)
  Receive Date: 20130826
  Receipt Date: 20130826
  Transmission Date: 20140515
  Serious: No
  Sender: FDA-Public Use
  Company Number: US-BAYER-2013-097368

PATIENT
  Age: 66 Year
  Sex: Female

DRUGS (1)
  1. STIVARGA [Suspect]
     Indication: COLORECTAL CANCER METASTATIC
     Dosage: PATIENT CURRENTLY ON ^4TH COURSE^
     Route: 048

REACTIONS (3)
  - Myalgia [None]
  - Musculoskeletal stiffness [None]
  - Abdominal pain [None]
